FAERS Safety Report 15158767 (Version 1)
Quarter: 2018Q3

REPORT INFORMATION
  Report Type: Spontaneous
  Country: US (occurrence: US)
  Receive Date: 20180718
  Receipt Date: 20180718
  Transmission Date: 20181010
  Serious: No
  Sender: FDA-Public Use
  Company Number: US-SA-2018SA189333

PATIENT
  Age: 69 Year
  Sex: Male

DRUGS (12)
  1. AMLODIPINE [Concomitant]
     Active Substance: AMLODIPINE BESYLATE
  2. METOPROL XL [Concomitant]
  3. PRALUENT [Suspect]
     Active Substance: ALIROCUMAB
     Indication: ANGINA PECTORIS
  4. MUPIROCIN. [Concomitant]
     Active Substance: MUPIROCIN
  5. IBUPROFEN. [Concomitant]
     Active Substance: IBUPROFEN
  6. LORAZEPAM. [Concomitant]
     Active Substance: LORAZEPAM
  7. ZETIA [Concomitant]
     Active Substance: EZETIMIBE
  8. PRALUENT [Suspect]
     Active Substance: ALIROCUMAB
     Indication: ARTERIOSCLEROSIS
     Dosage: 75 MG, QOW
     Route: 058
     Dates: start: 20161005
  9. ISOSORB DINIT [Concomitant]
  10. TERBINAFINE. [Concomitant]
     Active Substance: TERBINAFINE
  11. HYDROCODONE BITARTRATE AND ACETAMINOPHEN [Concomitant]
     Active Substance: ACETAMINOPHEN\HYDROCODONE BITARTRATE
  12. OXYCODONE HYDROCHLORIDE. [Concomitant]
     Active Substance: OXYCODONE HYDROCHLORIDE

REACTIONS (1)
  - Memory impairment [Not Recovered/Not Resolved]
